FAERS Safety Report 7031017-9 (Version None)
Quarter: 2010Q4

REPORT INFORMATION
  Report Type: 
  Country: None (occurrence: None)
  Receive Date: 20101006
  Receipt Date: 20101001
  Transmission Date: 20110411
  Serious: Yes (Hospitalization)
  Sender: FDA-Public Use
  Company Number: HU-AMGEN-UK309856

PATIENT
  Sex: Female

DRUGS (6)
  1. PANITUMUMAB [Suspect]
     Indication: SQUAMOUS CELL CARCINOMA
     Route: 042
     Dates: start: 20080908
  2. PANITUMUMAB - STUDY PROCEDURE [Suspect]
  3. CISPLATIN [Suspect]
     Dates: end: 20081124
  4. BENZOCAINE [Concomitant]
     Route: 048
     Dates: start: 20080915
  5. TRAMADOL HCL [Concomitant]
     Route: 048
     Dates: start: 20080922
  6. RADIATION THERAPY [Concomitant]

REACTIONS (3)
  - DEHYDRATION [None]
  - HYPONATRAEMIA [None]
  - STOMATITIS [None]
